FAERS Safety Report 8848850 (Version 3)
Quarter: 2013Q3

REPORT INFORMATION
  Report Type: Spontaneous
  Country: US (occurrence: US)
  Receive Date: 20121018
  Receipt Date: 20130717
  Transmission Date: 20140515
  Serious: No
  Sender: FDA-Public Use
  Company Number: US-009507513-1210USA003043

PATIENT
  Age: 23 Year
  Sex: Female
  Weight: 126.98 kg

DRUGS (2)
  1. IMPLANON [Suspect]
     Indication: CONTRACEPTION
     Dosage: LEFT ARM
     Route: 059
     Dates: start: 20090928, end: 20130307
  2. IMPLANON [Suspect]
     Dosage: UNK
     Route: 059
     Dates: start: 20130307

REACTIONS (5)
  - Device difficult to use [Recovered/Resolved]
  - Device dislocation [Recovered/Resolved]
  - Incorrect drug administration duration [Unknown]
  - Localised infection [Unknown]
  - Weight decreased [Unknown]
